FAERS Safety Report 16270366 (Version 1)
Quarter: 2019Q2

REPORT INFORMATION
  Report Type: Spontaneous
  Country: US (occurrence: US)
  Receive Date: 20190329
  Receipt Date: 20190329
  Transmission Date: 20190711
  Serious: Yes (Disabling, Other)
  Sender: FDA-Public Use
  Company Number: None

PATIENT
  Age: 69 Year
  Sex: Female
  Weight: 60.78 kg

DRUGS (6)
  1. MULTI VITAMIN [Concomitant]
     Active Substance: VITAMINS
  2. CALCITONIN SALMON (SYNTHETIC ORIGIN) NASAL SPRAY 2200 USP [Suspect]
     Active Substance: CALCITONIN SALMON
     Indication: OSTEOPOROSIS
     Dosage: ??          QUANTITY:30 DOSES PER BOTTL;OTHER ROUTE:SPRAY?
     Dates: start: 20190115, end: 20190318
  3. ASPIRIN. [Concomitant]
     Active Substance: ASPIRIN
  4. METOPROLOL TARTRATE. [Concomitant]
     Active Substance: METOPROLOL TARTRATE
  5. NITROGLYCERIN. [Concomitant]
     Active Substance: NITROGLYCERIN
  6. LISINOPRIL. [Concomitant]
     Active Substance: LISINOPRIL

REACTIONS (13)
  - Gait disturbance [None]
  - Myalgia [None]
  - Chest pain [None]
  - Vision blurred [None]
  - Neck pain [None]
  - Dry eye [None]
  - Arthralgia [None]
  - Fatigue [None]
  - Back pain [None]
  - Impaired self-care [None]
  - Musculoskeletal stiffness [None]
  - Insomnia [None]
  - Weight increased [None]

NARRATIVE: CASE EVENT DATE: 20190310
